FAERS Safety Report 23500298 (Version 1)
Quarter: 2024Q1

REPORT INFORMATION
  Report Type: Spontaneous
  Country: CN (occurrence: None)
  Receive Date: 20240208
  Receipt Date: 20240208
  Transmission Date: 20240410
  Serious: Yes (Other)
  Sender: FDA-Public Use
  Company Number: 2024A028116

PATIENT
  Age: 26404 Day
  Sex: Female
  Weight: 52 kg

DRUGS (2)
  1. FULVESTRANT [Suspect]
     Active Substance: FULVESTRANT
     Indication: Chemotherapy
     Route: 030
     Dates: start: 20231228, end: 20231228
  2. PALBOCICLIB [Suspect]
     Active Substance: PALBOCICLIB
     Indication: Chemotherapy
     Route: 048
     Dates: start: 20231228, end: 20240117

REACTIONS (1)
  - Myelosuppression [Unknown]

NARRATIVE: CASE EVENT DATE: 20240124
